FAERS Safety Report 13136750 (Version 2)
Quarter: 2017Q4

REPORT INFORMATION
  Report Type: Spontaneous
  Country: US (occurrence: US)
  Receive Date: 20170123
  Receipt Date: 20171226
  Transmission Date: 20180320
  Serious: Yes (Hospitalization, Other)
  Sender: FDA-Public Use
  Company Number: US-SUN PHARMACEUTICAL INDUSTRIES LTD-2015US-107295

PATIENT
  Age: 72 Year
  Sex: Male

DRUGS (2)
  1. MEMANTINE. [Suspect]
     Active Substance: MEMANTINE
  2. MEMANTINE. [Suspect]
     Active Substance: MEMANTINE
     Indication: VASCULAR DEMENTIA
     Dosage: 10 MG, BID
     Route: 065

REACTIONS (1)
  - Delirium [Recovered/Resolved]
